FAERS Safety Report 13296094 (Version 1)
Quarter: 2017Q1

REPORT INFORMATION
  Report Type: Spontaneous
  Country: AU (occurrence: AU)
  Receive Date: 20170304
  Receipt Date: 20170304
  Transmission Date: 20170428
  Serious: Yes (Other)
  Sender: FDA-Public Use
  Company Number: AU-SUN PHARMACEUTICAL INDUSTRIES LTD-2015R1-102220

PATIENT
  Age: 58 Year
  Sex: Male

DRUGS (1)
  1. PHENYTOIN. [Suspect]
     Active Substance: PHENYTOIN
     Indication: MYOTONIA
     Dosage: UNK
     Route: 065

REACTIONS (4)
  - Altered state of consciousness [Recovering/Resolving]
  - Lethargy [Recovering/Resolving]
  - Toxicity to various agents [Recovering/Resolving]
  - Vertigo [Recovering/Resolving]
